FAERS Safety Report 4982458-2 (Version None)
Quarter: 2006Q2

REPORT INFORMATION
  Report Type: 
  Country: None (occurrence: None)
  Receive Date: 20060419
  Receipt Date: 20060404
  Transmission Date: 20061013
  Serious: Yes (Hospitalization, Other)
  Sender: FDA-Public Use
  Company Number: 2006-BP-03950RO

PATIENT
  Age: 48 Year
  Sex: Female

DRUGS (6)
  1. METHOTREXATE [Suspect]
     Indication: RHEUMATOID ARTHRITIS
     Dosage: 10 MG PER WEEK (1 IN 1 WK), PO
     Route: 048
  2. PREDNISONE TAB [Concomitant]
  3. PRIOXICAM (PIROXICAM) [Concomitant]
  4. FOLIC ACID [Concomitant]
  5. CALCIUM (CALCIUM) [Concomitant]
  6. MULTIVITAMIN [Concomitant]

REACTIONS (27)
  - ABDOMINAL DISCOMFORT [None]
  - ALANINE AMINOTRANSFERASE INCREASED [None]
  - ALEUKAEMIC LEUKAEMIA [None]
  - ANAEMIA [None]
  - ANOREXIA [None]
  - APLASTIC ANAEMIA [None]
  - ASPARTATE AMINOTRANSFERASE INCREASED [None]
  - ASTHENIA [None]
  - BAND NEUTROPHIL PERCENTAGE INCREASED [None]
  - BLOOD ALKALINE PHOSPHATASE INCREASED [None]
  - DYSPNOEA EXERTIONAL [None]
  - FATIGUE [None]
  - HODGKIN'S DISEASE [None]
  - HYPERCALCAEMIA [None]
  - HYPERSPLENISM [None]
  - LEUKOPENIA [None]
  - LIVER FUNCTION TEST ABNORMAL [None]
  - LIVER PALPABLE SUBCOSTAL [None]
  - NAUSEA [None]
  - NEUTROPHIL PERCENTAGE DECREASED [None]
  - PARAPROTEINAEMIA [None]
  - PLATELET COUNT DECREASED [None]
  - RED BLOOD CELL SPHEROCYTES PRESENT [None]
  - RENAL FAILURE ACUTE [None]
  - SPLENOMEGALY [None]
  - VOMITING [None]
  - WEIGHT DECREASED [None]
